FAERS Safety Report 12716312 (Version 1)
Quarter: 2016Q3

REPORT INFORMATION
  Report Type: Other
  Country: US (occurrence: US)
  Receive Date: 20160906
  Receipt Date: 20160906
  Transmission Date: 20161109
  Serious: No
  Sender: FDA-Public Use
  Company Number: US-COL_11997_2012

PATIENT
  Age: 71 Year
  Sex: Male

DRUGS (3)
  1. COLGATE TOTAL WHITENING [Suspect]
     Active Substance: SODIUM FLUORIDE\TRICLOSAN
     Indication: DENTAL PLAQUE
     Dosage: NI/NI/
     Route: 048
     Dates: start: 20120701, end: 20120701
  2. COLGATE TOTAL WHITENING [Suspect]
     Active Substance: SODIUM FLUORIDE\TRICLOSAN
     Indication: GINGIVITIS
     Dosage: NI/NI/
     Route: 048
     Dates: start: 20120701, end: 20120701
  3. COLGATE TOTAL WHITENING [Suspect]
     Active Substance: SODIUM FLUORIDE\TRICLOSAN
     Indication: DENTAL CARIES
     Dosage: NI/NI/
     Route: 048
     Dates: start: 20120701, end: 20120701

REACTIONS (2)
  - Pain in extremity [Unknown]
  - Product container issue [Unknown]

NARRATIVE: CASE EVENT DATE: 20120701
